FAERS Safety Report 9741517 (Version 2)
Quarter: 2013Q4

REPORT INFORMATION
  Report Type: Spontaneous
  Country: PL (occurrence: PL)
  Receive Date: 20131209
  Receipt Date: 20131209
  Transmission Date: 20140711
  Serious: Yes (Other)
  Sender: FDA-Public Use
  Company Number: PL-ROCHE-1297883

PATIENT
  Age: 42 Year
  Sex: Male

DRUGS (2)
  1. ZELBORAF [Suspect]
     Indication: PRODUCT USED FOR UNKNOWN INDICATION
     Dosage: 960 MG X2
     Route: 065
     Dates: start: 20130916, end: 20131016
  2. ZELBORAF [Suspect]
     Dosage: 720 MG X2.
     Route: 065

REACTIONS (3)
  - Transaminases increased [Not Recovered/Not Resolved]
  - Fatigue [Unknown]
  - Toxicity to various agents [Unknown]
